FAERS Safety Report 6114479-0 (Version None)
Quarter: 2009Q1

REPORT INFORMATION
  Report Type: 
  Country: None (occurrence: None)
  Receive Date: 20090313
  Receipt Date: 20090303
  Transmission Date: 20090719
  Serious: Yes (Hospitalization, Congenital Anomaly)
  Sender: FDA-Public Use
  Company Number: US-AMGEN-US333306

PATIENT
  Sex: Female
  Weight: 4.03 kg

DRUGS (16)
  1. ENBREL [Suspect]
     Indication: RHEUMATOID ARTHRITIS
     Route: 064
     Dates: start: 20070503, end: 20070524
  2. PLAQUENIL [Concomitant]
     Route: 064
     Dates: start: 20070503, end: 20070530
  3. PREDNISONE [Concomitant]
     Route: 064
     Dates: start: 20080115, end: 20080131
  4. PREDNISONE [Concomitant]
     Route: 064
     Dates: start: 20071007, end: 20080115
  5. VITAMIN TAB [Concomitant]
     Route: 064
     Dates: start: 20070503, end: 20080131
  6. CALCIUM [Concomitant]
     Route: 064
     Dates: start: 20070503, end: 20080131
  7. FISH OIL [Concomitant]
     Route: 064
     Dates: start: 20070503, end: 20080131
  8. MAGNESIUM SULFATE [Concomitant]
     Route: 064
     Dates: start: 20070503, end: 20080131
  9. IBUPROFEN [Concomitant]
     Route: 064
     Dates: start: 20070503, end: 20070531
  10. IBUPROFEN [Concomitant]
     Route: 064
     Dates: start: 20070531, end: 20070619
  11. IBUPROFEN [Concomitant]
     Route: 064
     Dates: start: 20070620, end: 20070731
  12. IBUPROFEN [Concomitant]
     Route: 064
     Dates: start: 20070801, end: 20071001
  13. HYDROCORTISONE [Concomitant]
     Route: 064
     Dates: start: 20070905, end: 20070911
  14. RHOGAM [Concomitant]
     Route: 064
     Dates: start: 20071114, end: 20071114
  15. TYLENOL (CAPLET) [Concomitant]
     Route: 064
     Dates: start: 20070911, end: 20080131
  16. BROMELIN [Concomitant]
     Route: 064
     Dates: start: 20070503, end: 20080131

REACTIONS (5)
  - ATRIAL SEPTAL DEFECT [None]
  - NEONATAL ASPIRATION [None]
  - NEONATAL RESPIRATORY DISTRESS SYNDROME [None]
  - NOONAN SYNDROME [None]
  - PULMONARY ARTERY STENOSIS CONGENITAL [None]
